FAERS Safety Report 9188527 (Version 1)
Quarter: 2012Q4

REPORT INFORMATION
  Report Type: 
  Country: JP (occurrence: JP)
  Receive Date: 20121205
  Receipt Date: 20121205
  Transmission Date: 20130627
  Serious: Yes (Other)
  Sender: FDA-Public Use
  Company Number: JP-UCBSA-072177

PATIENT
  Age: 30 Year
  Sex: Female

DRUGS (2)
  1. E KEPPRA [Suspect]
     Indication: EPILEPSY
     Dosage: DOSE: 1000 MG/DAY OR 1500 MG/DAY
     Route: 048
  2. NONE [Concomitant]

REACTIONS (1)
  - Colitis ulcerative [Unknown]
